FAERS Safety Report 5378999-9 (Version None)
Quarter: 2007Q3

REPORT INFORMATION
  Report Type: 
  Country: None (occurrence: None)
  Receive Date: 20070705
  Receipt Date: 20070626
  Transmission Date: 20080115
  Serious: Yes (Hospitalization)
  Sender: FDA-Public Use
  Company Number: GB-AMGEN-US232253

PATIENT

DRUGS (2)
  1. ENBREL [Suspect]
     Indication: DRUG USE FOR UNKNOWN INDICATION
     Dosage: UNKNOWN
     Route: 058
     Dates: start: 20060826, end: 20070601
  2. METHOTREXATE [Concomitant]
     Dosage: UNKNOWN

REACTIONS (2)
  - CHOLECYSTITIS [None]
  - SEPSIS [None]
